FAERS Safety Report 9246907 (Version 1)
Quarter: 2013Q2

REPORT INFORMATION
  Report Type: Report from Study
  Country: IT (occurrence: IT)
  Receive Date: 20130422
  Receipt Date: 20130422
  Transmission Date: 20140414
  Serious: Yes (Death, Hospitalization)
  Sender: FDA-Public Use
  Company Number: IT-GLAXOSMITHKLINE-B0885551A

PATIENT
  Age: 81 Year
  Sex: Male
  Weight: 75 kg

DRUGS (4)
  1. MELPHALAN [Suspect]
     Indication: PLASMA CELL MYELOMA
  2. LENALIDOMIDE [Suspect]
     Indication: PLASMA CELL MYELOMA
     Route: 048
  3. PREDNISONE [Suspect]
     Indication: PLASMA CELL MYELOMA
  4. PLACEBO [Suspect]
     Indication: PRODUCT USED FOR UNKNOWN INDICATION

REACTIONS (1)
  - Metastatic neoplasm [Fatal]
